FAERS Safety Report 8638002 (Version 2)
Quarter: 2013Q3

REPORT INFORMATION
  Report Type: Spontaneous
  Country: US (occurrence: US)
  Receive Date: 20120627
  Receipt Date: 20130725
  Transmission Date: 20140515
  Serious: No
  Sender: FDA-Public Use
  Company Number: US-GLAXOSMITHKLINE-A0975964A

PATIENT
  Age: 40 Year
  Sex: Female

DRUGS (8)
  1. LAMICTAL XR [Suspect]
     Indication: EPILEPSY
     Dosage: 200MG TWICE PER DAY
     Route: 048
     Dates: start: 20090715
  2. LAMICTAL [Suspect]
     Indication: PARTIAL SEIZURES
     Route: 065
     Dates: start: 200907
  3. ZONEGRAN [Concomitant]
  4. TEGRETOL [Concomitant]
  5. CLONAZEPAM [Concomitant]
  6. VITAMIN [Concomitant]
  7. GLUCOSAMINE [Concomitant]
  8. ZOMIG [Concomitant]

REACTIONS (2)
  - Myalgia [Not Recovered/Not Resolved]
  - Visual impairment [Not Recovered/Not Resolved]
